FAERS Safety Report 4915853-8 (Version None)
Quarter: 2006Q1

REPORT INFORMATION
  Report Type: 
  Country: None (occurrence: None)
  Receive Date: 20060214
  Receipt Date: 20060202
  Transmission Date: 20060701
  Serious: Yes (Hospitalization, Other)
  Sender: FDA-Public Use
  Company Number: 2006017393

PATIENT
  Age: 68 Year
  Sex: Male
  Weight: 1133.9926 kg

DRUGS (2)
  1. LIPITOR [Suspect]
     Indication: ILL-DEFINED DISORDER
     Dosage: ORAL
     Route: 048
  2. ANTI-DIABETES (ANTI-DIABETICS) [Concomitant]

REACTIONS (3)
  - CARDIAC DISORDER [None]
  - CORONARY ARTERY OCCLUSION [None]
  - MYOCARDIAL INFARCTION [None]
